FAERS Safety Report 9210039 (Version 1)
Quarter: 2012Q4

REPORT INFORMATION
  Report Type: 
  Country: FR (occurrence: FR)
  Receive Date: 20120903
  Receipt Date: 20120903
  Transmission Date: 20130627
  Serious: Yes (Hospitalization, Other)
  Sender: FDA-Public Use
  Company Number: PHHY2012FR075409

PATIENT
  Age: 86 None
  Sex: Female

DRUGS (10)
  1. TEGRETOL [Suspect]
     Indication: MOOD ALTERED
     Route: 048
     Dates: start: 20120628, end: 20120802
  2. EBIXA [Concomitant]
     Dosage: UNK
     Route: 048
  3. EXELON [Concomitant]
     Dosage: UNK
     Route: 048
  4. CARDENSIEL [Concomitant]
     Route: 048
  5. LASILIX [Concomitant]
     Route: 048
  6. SERTRALINE [Concomitant]
     Route: 048
  7. TEMESTA [Concomitant]
     Route: 048
  8. KARDEGIC [Concomitant]
     Route: 048
  9. TAREG [Concomitant]
     Route: 048
  10. HEMIGOXINE [Concomitant]
     Route: 048

REACTIONS (6)
  - Enanthema [Unknown]
  - Inflammation [Unknown]
  - Renal failure [Unknown]
  - Gamma-glutamyltransferase increased [Unknown]
  - Rash maculo-papular [Recovered/Resolved]
  - Pyrexia [Unknown]
